FAERS Safety Report 10284555 (Version 1)
Quarter: 2014Q3

REPORT INFORMATION
  Report Type: Spontaneous
  Country: US (occurrence: None)
  Receive Date: 20140703
  Receipt Date: 20140703
  Transmission Date: 20150326
  Serious: Yes (Hospitalization)
  Sender: FDA-Public Use
  Company Number: None

PATIENT
  Age: 45 Year
  Sex: Male
  Weight: 92.8 kg

DRUGS (4)
  1. ATIVAN [Concomitant]
     Active Substance: LORAZEPAM
  2. FENTANYL. [Concomitant]
     Active Substance: FENTANYL
  3. CISPLATIN. [Suspect]
     Active Substance: CISPLATIN
  4. MORPHINE [Concomitant]
     Active Substance: MORPHINE

REACTIONS (8)
  - Hypersomnia [None]
  - Odynophagia [None]
  - Dehydration [None]
  - Oropharyngeal pain [None]
  - Neck pain [None]
  - Respiratory failure [None]
  - Pneumonia aspiration [None]
  - Confusional state [None]

NARRATIVE: CASE EVENT DATE: 20140620
